FAERS Safety Report 24064396 (Version 2)
Quarter: 2025Q1

REPORT INFORMATION
  Report Type: Spontaneous
  Country: JP (occurrence: JP)
  Receive Date: 20240709
  Receipt Date: 20250117
  Transmission Date: 20250408
  Serious: Yes (Death, Hospitalization, Other)
  Sender: ASTELLAS
  Company Number: JP-ASTELLAS-2024JP004677

PATIENT
  Age: 78 Year
  Sex: Female
  Weight: 64 kg

DRUGS (15)
  1. PADCEV [Suspect]
     Active Substance: ENFORTUMAB VEDOTIN-EJFV
     Indication: Ureteral neoplasm
     Route: 042
     Dates: start: 20240403, end: 20240417
  2. BAVENCIO [Suspect]
     Active Substance: AVELUMAB
     Indication: Product used for unknown indication
     Route: 065
     Dates: start: 20240117, end: 20240313
  3. GEMCITABINE [Concomitant]
     Active Substance: GEMCITABINE
     Indication: Product used for unknown indication
     Route: 065
     Dates: start: 202309
  4. CISPLATIN [Concomitant]
     Active Substance: CISPLATIN
     Indication: Product used for unknown indication
     Route: 065
     Dates: start: 202309
  5. Magnesium Oxide Tablets 250mg [Concomitant]
     Indication: Product used for unknown indication
     Route: 048
     Dates: start: 20230919
  6. Sennoside Tablets 12mg [Concomitant]
     Indication: Product used for unknown indication
     Route: 048
     Dates: start: 20231222
  7. FEXOFENADINE [Concomitant]
     Active Substance: FEXOFENADINE HYDROCHLORIDE
     Indication: Rash
     Route: 065
     Dates: start: 20240417
  8. DIFLUPREDNATE [Concomitant]
     Active Substance: DIFLUPREDNATE
     Indication: Rash
     Route: 065
     Dates: start: 20240417
  9. FLUCONAZOLE [Concomitant]
     Active Substance: FLUCONAZOLE
     Indication: Oral candidiasis
     Route: 065
     Dates: start: 20240424
  10. PIPERACILLIN SODIUM\TAZOBACTAM SODIUM [Concomitant]
     Active Substance: PIPERACILLIN SODIUM\TAZOBACTAM SODIUM
     Indication: Febrile neutropenia
     Route: 065
     Dates: start: 20240424
  11. FILGRASTIM [Concomitant]
     Active Substance: FILGRASTIM
     Indication: Febrile neutropenia
     Route: 065
     Dates: start: 20240424
  12. CLOBETASOL PROPIONATE [Concomitant]
     Active Substance: CLOBETASOL PROPIONATE
     Indication: Rash
     Route: 065
     Dates: start: 20240425
  13. Locoid Ointment [Concomitant]
     Indication: Product used for unknown indication
     Route: 065
     Dates: start: 20240426
  14. Hachiazule Mouthwash [Concomitant]
     Indication: Product used for unknown indication
     Route: 065
     Dates: start: 20240426
  15. Xylocaine Mouthwash [Concomitant]
     Indication: Product used for unknown indication
     Route: 065
     Dates: start: 20240426

REACTIONS (4)
  - Febrile neutropenia [Fatal]
  - Platelet count decreased [Fatal]
  - Rash erythematous [Recovering/Resolving]
  - Blister [Recovering/Resolving]

NARRATIVE: CASE EVENT DATE: 20240417
